FAERS Safety Report 5302008-0 (Version None)
Quarter: 2007Q2

REPORT INFORMATION
  Report Type: 
  Country: None (occurrence: None)
  Receive Date: 20070416
  Receipt Date: 20070416
  Transmission Date: 20071010
  Serious: No
  Sender: FDA-Public Use
  Company Number: None

PATIENT
  Sex: Female
  Weight: 55.7924 kg

DRUGS (1)
  1. LEXAPRO [Suspect]
     Indication: PANIC DISORDER
     Dosage: 25MG   ONCE A DAY  PO
     Route: 048
     Dates: start: 20020914, end: 20070414

REACTIONS (1)
  - ANORGASMIA [None]
